FAERS Safety Report 5431578-7 (Version None)
Quarter: 2007Q3

REPORT INFORMATION
  Report Type: 
  Country: None (occurrence: None)
  Receive Date: 20070828
  Receipt Date: 20070817
  Transmission Date: 20080115
  Serious: Yes (Hospitalization)
  Sender: FDA-Public Use
  Company Number: 236661K07USA

PATIENT
  Age: 50 Year
  Sex: Female

DRUGS (5)
  1. REBIF [Suspect]
     Indication: MULTIPLE SCLEROSIS
     Dosage: 44 MCG, 3 IN 1 WEEKS, SUBCUTANEOUS
     Route: 058
     Dates: start: 20070316
  2. LITHIUM (LITHIUM /000337017) [Suspect]
     Dates: start: 20020101, end: 20070718
  3. LITHIUM (LITHIUM /000337017) [Suspect]
     Dates: start: 20070724, end: 20070727
  4. ZOCOR [Concomitant]
  5. DIOVAN [Concomitant]

REACTIONS (7)
  - DRUG LEVEL INCREASED [None]
  - DYSGEUSIA [None]
  - FALL [None]
  - HAEMATOMA [None]
  - HEAD INJURY [None]
  - MULTIPLE SCLEROSIS [None]
  - OVERDOSE [None]
